FAERS Safety Report 6941171-2 (Version None)
Quarter: 2010Q3

REPORT INFORMATION
  Report Type: 
  Country: None (occurrence: None)
  Receive Date: 20100825
  Receipt Date: 20100607
  Transmission Date: 20110219
  Serious: No
  Sender: FDA-Public Use
  Company Number: US-BRISTOL-MYERS SQUIBB COMPANY-15137847

PATIENT
  Age: 58 Year
  Sex: Male

DRUGS (2)
  1. ONGLYZA [Suspect]
     Indication: TYPE 2 DIABETES MELLITUS
  2. METFORMIN HCL [Suspect]
     Indication: TYPE 2 DIABETES MELLITUS
     Dosage: INITIAL DOSE - 1500 MG   INCREASED TO 2000 MG
     Dates: start: 20091201

REACTIONS (1)
  - GLYCOSYLATED HAEMOGLOBIN INCREASED [None]
